FAERS Safety Report 8426287-6 (Version None)
Quarter: 2012Q2

REPORT INFORMATION
  Report Type: 
  Country: None (occurrence: None)
  Receive Date: 20120323
  Receipt Date: 20110825
  Transmission Date: 20120825
  Serious: Yes (Other)
  Sender: FDA-Public Use
  Company Number: 163-21880-11043252

PATIENT
  Age: 56 Year
  Sex: Male

DRUGS (4)
  1. DECADRON [Concomitant]
  2. REVLIMID [Suspect]
     Indication: MULTIPLE MYELOMA
     Dosage: 25 MG, 1 IN 1 D, PO ; 25 MG, 1 IN 1 D
     Route: 048
     Dates: start: 20091101
  3. REVLIMID [Suspect]
     Indication: MULTIPLE MYELOMA
     Dosage: 25 MG, 1 IN 1 D, PO ; 25 MG, 1 IN 1 D
     Route: 048
     Dates: start: 20100601
  4. VELCADE [Concomitant]

REACTIONS (6)
  - LIGHT CHAIN ANALYSIS INCREASED [None]
  - CONDITION AGGRAVATED [None]
  - PAIN [None]
  - THROMBOSIS [None]
  - MULTIPLE MYELOMA [None]
  - NEOPLASM PROGRESSION [None]
